FAERS Safety Report 4683956-1 (Version None)
Quarter: 2005Q2

REPORT INFORMATION
  Report Type: 
  Country: None (occurrence: None)
  Receive Date: 20050607
  Receipt Date: 20041223
  Transmission Date: 20051028
  Serious: Yes (Disabling)
  Sender: FDA-Public Use
  Company Number: GB-BRISTOL-MYERS SQUIBB COMPANY-12806022

PATIENT
  Age: 44 Year
  Sex: Male

DRUGS (3)
  1. ABILIFY [Suspect]
     Indication: SCHIZOPHRENIA
     Dosage: 15 MG THEN REDUCED TO 10 MG/DAY
     Route: 048
  2. PARACETAMOL [Concomitant]
  3. FLOMAX [Concomitant]

REACTIONS (2)
  - BLINDNESS [None]
  - RETINAL DISORDER [None]
